FAERS Safety Report 7241478-8 (Version None)
Quarter: 2011Q1

REPORT INFORMATION
  Report Type: 
  Country: None (occurrence: None)
  Receive Date: 20110124
  Receipt Date: 20110111
  Transmission Date: 20110831
  Serious: Yes (Other)
  Sender: FDA-Public Use
  Company Number: JP-AMGEN-JPNCT2011004080

PATIENT
  Age: 71 Year
  Sex: Female
  Weight: 47 kg

DRUGS (24)
  1. FLUOROURACIL [Suspect]
     Route: 041
     Dates: start: 20101021, end: 20101021
  2. CALCIUM LEVOFOLINATE [Concomitant]
     Indication: COLORECTAL CANCER
     Route: 041
     Dates: start: 20101021, end: 20101021
  3. VENA [Concomitant]
     Dosage: UNK
     Route: 048
  4. LIDOMEX LOTION [Concomitant]
     Dosage: UNK
     Route: 062
  5. IRINOTECAN HYDROCHLORIDE [Suspect]
     Indication: COLORECTAL CANCER
     Route: 041
     Dates: start: 20101105, end: 20101105
  6. ANTIHISTAMINES [Concomitant]
     Indication: PROPHYLAXIS
     Dosage: UNK
     Route: 065
  7. CORTICOSTEROIDS [Concomitant]
     Indication: PROPHYLAXIS
     Dosage: UNK
     Route: 065
  8. LOCOID CREAM [Concomitant]
     Dosage: UNK
     Route: 062
  9. PANITUMUMAB [Suspect]
     Indication: COLORECTAL CANCER
     Dosage: 6 MG/KG, Q2WK
     Route: 041
     Dates: start: 20101021, end: 20101021
  10. PANITUMUMAB [Suspect]
     Dosage: 6 MG/KG, Q2WK
     Route: 041
     Dates: start: 20101203
  11. KYTRIL [Concomitant]
     Dosage: UNK
     Route: 042
  12. POLARAMINE [Concomitant]
     Dosage: UNK
     Route: 042
  13. FLUOROURACIL [Suspect]
     Indication: COLORECTAL CANCER
     Route: 040
     Dates: start: 20101021, end: 20101021
  14. ERBITUX [Suspect]
     Indication: COLORECTAL CANCER
     Dosage: 540 MG, UNK
     Route: 041
     Dates: start: 20101105, end: 20101105
  15. DEXART [Concomitant]
     Dosage: UNK
     Route: 042
  16. UREPEARL CREAM [Concomitant]
     Dosage: UNK
     Route: 062
  17. IRINOTECAN HYDROCHLORIDE [Suspect]
     Route: 041
     Dates: start: 20101203
  18. MYSER OINTMENT [Concomitant]
     Dosage: UNK
     Route: 062
  19. MAGLAX [Concomitant]
     Dosage: UNK
     Route: 048
  20. OXALIPLATIN [Concomitant]
     Indication: COLORECTAL CANCER
     Route: 041
     Dates: start: 20101021, end: 20101021
  21. GASTER [Concomitant]
     Dosage: UNK
     Route: 042
  22. SOLANAX [Concomitant]
     Dosage: UNK
     Route: 048
  23. HIRUDOID SOFT [Concomitant]
     Dosage: UNK
     Route: 062
  24. NORVASC [Concomitant]
     Dosage: UNK
     Route: 048

REACTIONS (6)
  - INSOMNIA [None]
  - BACK PAIN [None]
  - DYSGEUSIA [None]
  - URTICARIA [None]
  - VOMITING [None]
  - RASH [None]
